FAERS Safety Report 24037461 (Version 1)
Quarter: 2024Q3

REPORT INFORMATION
  Report Type: Report from Study
  Country: CA (occurrence: CA)
  Receive Date: 20240702
  Receipt Date: 20240702
  Transmission Date: 20241017
  Serious: Yes (Other)
  Sender: ABBVIE
  Company Number: CA-ABBVIE-5818724

PATIENT
  Age: 67 Year
  Sex: Female
  Weight: 57 kg

DRUGS (1)
  1. SKYRIZI [Suspect]
     Active Substance: RISANKIZUMAB-RZAA
     Indication: Crohn^s disease
     Route: 058
     Dates: start: 20230602

REACTIONS (7)
  - Anal fistula [Unknown]
  - Basal cell carcinoma [Unknown]
  - Vulvovaginal injury [Unknown]
  - Feeling abnormal [Unknown]
  - Skin papilloma [Unknown]
  - Social problem [Unknown]
  - Impaired quality of life [Unknown]
